FAERS Safety Report 13560062 (Version 1)
Quarter: 2017Q2

REPORT INFORMATION
  Report Type: Spontaneous
  Country: SA (occurrence: SA)
  Receive Date: 20170518
  Receipt Date: 20170518
  Transmission Date: 20170830
  Serious: Yes (Other)
  Sender: FDA-Public Use
  Company Number: SA-FRESENIUS KABI-FK201704265

PATIENT
  Age: 20 Year
  Sex: Male

DRUGS (3)
  1. FLUDARABINE [Suspect]
     Active Substance: FLUDARABINE PHOSPHATE
     Indication: PRECURSOR B-LYMPHOBLASTIC LYMPHOMA
     Route: 042
  2. ARA-C [Suspect]
     Active Substance: CYTARABINE
     Route: 042
  3. ARA-C [Suspect]
     Active Substance: CYTARABINE
     Indication: PRECURSOR B-LYMPHOBLASTIC LYMPHOMA

REACTIONS (3)
  - Septic shock [Recovered/Resolved]
  - Hyperpyrexia [Recovered/Resolved]
  - Diarrhoea [Recovered/Resolved]
